FAERS Safety Report 15703155 (Version 1)
Quarter: 2018Q4

REPORT INFORMATION
  Report Type: Spontaneous
  Country: BE (occurrence: BE)
  Receive Date: 20181210
  Receipt Date: 20181210
  Transmission Date: 20190205
  Serious: Yes (Other)
  Sender: FDA-Public Use
  Company Number: BE-ACCORD-094939

PATIENT
  Age: 64 Year
  Sex: Male

DRUGS (1)
  1. ATORVASTATIN/ATORVASTATIN CALCIUM [Suspect]
     Active Substance: ATORVASTATIN CALCIUM
     Indication: HYPERLIPIDAEMIA

REACTIONS (4)
  - Immune-mediated necrotising myopathy [Recovered/Resolved]
  - Muscular weakness [Unknown]
  - Extranodal marginal zone B-cell lymphoma (MALT type) [Unknown]
  - Non-Hodgkin^s lymphoma [Unknown]
